FAERS Safety Report 10784100 (Version 3)
Quarter: 2015Q3

REPORT INFORMATION
  Report Type: Spontaneous
  Country: IT (occurrence: IT)
  Receive Date: 20150211
  Receipt Date: 20150707
  Transmission Date: 20151125
  Serious: Yes (Death)
  Sender: FDA-Public Use
  Company Number: IT-ROCHE-1536165

PATIENT
  Age: 90 Year
  Sex: Female

DRUGS (9)
  1. CLEXANE [Concomitant]
     Active Substance: ENOXAPARIN SODIUM
     Dosage: 2000 I.U. AXA/0.2 ML 6 X 0.2ML PRE-FILLED SYRINGES
     Route: 058
     Dates: start: 20141211, end: 20141213
  2. SODIUM BICARBONATE. [Concomitant]
     Active Substance: SODIUM BICARBONATE
     Route: 048
     Dates: start: 20141213
  3. CIPROFLOXACIN. [Suspect]
     Active Substance: CIPROFLOXACIN
     Indication: URINARY TRACT INFECTION
     Dosage: 1 G/3.5 ML 1 VIAL POWDER +1 AMPOULE SOLVENT 3.5 ML
     Route: 048
     Dates: start: 20141212, end: 20141213
  4. TRAMADOL HYDROCHLORIDE. [Suspect]
     Active Substance: TRAMADOL HYDROCHLORIDE
     Indication: PAIN
     Route: 030
     Dates: start: 20141211, end: 20141213
  5. ZOFRAN [Concomitant]
     Active Substance: ONDANSETRON HYDROCHLORIDE
     Route: 042
     Dates: start: 20141213, end: 20141213
  6. TORA-DOL [Concomitant]
     Active Substance: KETOROLAC TROMETHAMINE
     Route: 065
     Dates: start: 20141213, end: 20141213
  7. ROCEFIN [Suspect]
     Active Substance: CEFTRIAXONE SODIUM
     Indication: URINARY TRACT INFECTION
     Dosage: 1 G/3.5ML -1 VIAL OF POWDER+1 X3.5ML VIAL
     Route: 030
     Dates: start: 20141213, end: 20141214
  8. TACHIPIRINA [Concomitant]
     Active Substance: ACETAMINOPHEN
     Dosage: 1000 MG 16 TABLETS
     Route: 048
     Dates: start: 20141211, end: 20141214
  9. CONTRAMAL [Suspect]
     Active Substance: TRAMADOL HYDROCHLORIDE
     Indication: PAIN
     Dosage: 100 MG/2 ML SOLUTION FOR INJECTION
     Route: 042
     Dates: start: 20141213, end: 20141213

REACTIONS (1)
  - Toxic epidermal necrolysis [Fatal]

NARRATIVE: CASE EVENT DATE: 20141213
